FAERS Safety Report 4840229-1 (Version None)
Quarter: 2005Q4

REPORT INFORMATION
  Report Type: 
  Country: None (occurrence: None)
  Receive Date: 20051125
  Receipt Date: 20051116
  Transmission Date: 20060501
  Serious: Yes (Hospitalization)
  Sender: FDA-Public Use
  Company Number: 217288

PATIENT
  Age: 69 Year
  Sex: Female

DRUGS (11)
  1. AVASTIN [Suspect]
     Indication: COLON CANCER
     Dosage: 375 MG, INTRAVENOUS
     Route: 042
     Dates: start: 20050802, end: 20050802
  2. OXALIPLATIN [Concomitant]
  3. FLUOROURACIL [Concomitant]
  4. LEUCOVORIN CALCIUM [Concomitant]
  5. LIPITOR [Concomitant]
  6. ASPIRIN [Concomitant]
  7. CARDIZEM [Concomitant]
  8. ALDACTAZIDE [Concomitant]
  9. ADVAIR(SALMETEROL XINAFOATE, FLUTICASONE PROPIONATE) [Concomitant]
  10. CLARITIN [Concomitant]
  11. TRAZODONE HCL [Concomitant]

REACTIONS (17)
  - ATRIAL FIBRILLATION [None]
  - BLOOD CREATINE PHOSPHOKINASE INCREASED [None]
  - CARDIAC ARREST [None]
  - CARDIOMYOPATHY [None]
  - CHEST PAIN [None]
  - EJECTION FRACTION DECREASED [None]
  - ELECTROCARDIOGRAM ST SEGMENT ABNORMAL [None]
  - ELECTROCARDIOGRAM T WAVE INVERSION [None]
  - EXTRASYSTOLES [None]
  - HYPOKINESIA [None]
  - MYOCARDIAL INFARCTION [None]
  - PULMONARY EMBOLISM [None]
  - TORSADE DE POINTES [None]
  - VENTRICULAR DYSFUNCTION [None]
  - VENTRICULAR EXTRASYSTOLES [None]
  - VENTRICULAR FIBRILLATION [None]
  - VENTRICULAR TACHYCARDIA [None]
